FAERS Safety Report 14931589 (Version 2)
Quarter: 2018Q2

REPORT INFORMATION
  Report Type: Report from Study
  Country: None (occurrence: GB)
  Receive Date: 20180524
  Receipt Date: 20180625
  Transmission Date: 20180711
  Serious: Yes (Hospitalization)
  Sender: FDA-Public Use
  Company Number: GB-BIOVITRUM-2018GB0563

PATIENT
  Sex: Male

DRUGS (2)
  1. KINERET [Suspect]
     Active Substance: ANAKINRA
     Route: 058
     Dates: start: 201806
  2. KINERET [Suspect]
     Active Substance: ANAKINRA
     Indication: STILL^S DISEASE
     Dosage: ONCE DAILY (IN THE MORNING)
     Route: 058
     Dates: start: 201803

REACTIONS (4)
  - Injection site erythema [Not Recovered/Not Resolved]
  - Drug effect incomplete [Unknown]
  - Pyrexia [Recovered/Resolved]
  - Injection site rash [Not Recovered/Not Resolved]
